FAERS Safety Report 26173175 (Version 1)
Quarter: 2025Q4

REPORT INFORMATION
  Report Type: Report from Study
  Country: BR (occurrence: BR)
  Receive Date: 20251218
  Receipt Date: 20251218
  Transmission Date: 20260117
  Serious: Yes (Hospitalization, Other)
  Sender: ALEXION PHARMACEUTICALS
  Company Number: BR-AstraZeneca-CH-01014553A

PATIENT
  Age: 46 Year
  Sex: Male

DRUGS (2)
  1. SOLIRIS [Suspect]
     Active Substance: ECULIZUMAB
     Indication: Paroxysmal nocturnal haemoglobinuria
     Dosage: 600 MILLIGRAM, QW
     Dates: start: 20161215, end: 20170105
  2. SOLIRIS [Suspect]
     Active Substance: ECULIZUMAB
     Dosage: 900 MILLIGRAM, Q2W
     Dates: start: 20170112

REACTIONS (14)
  - Bone marrow failure [Unknown]
  - Haemolysis [Unknown]
  - Drug ineffective [Unknown]
  - Haemoglobin increased [Unknown]
  - Platelet count decreased [Unknown]
  - Epistaxis [Unknown]
  - Mouth haemorrhage [Unknown]
  - Ear haemorrhage [Unknown]
  - Ocular icterus [Unknown]
  - Abdominal pain [Unknown]
  - Chromaturia [Unknown]
  - Vomiting [Unknown]
  - Pyrexia [Unknown]
  - Blood lactate dehydrogenase increased [Unknown]

NARRATIVE: CASE EVENT DATE: 20250701
